FAERS Safety Report 4724560-6 (Version None)
Quarter: 2005Q3

REPORT INFORMATION
  Report Type: 
  Country: None (occurrence: None)
  Receive Date: 20050719
  Receipt Date: 20050719
  Transmission Date: 20060218
  Serious: No
  Sender: FDA-Public Use
  Company Number: None

PATIENT
  Age: 70 Year
  Sex: Male
  Weight: 97.977 kg

DRUGS (12)
  1. IRESSA [Suspect]
     Indication: RENAL CELL CARCINOMA STAGE UNSPECIFIED
     Dosage: 250 MG QD PO
     Route: 048
     Dates: start: 20050627
  2. PEG INTERFERON [Suspect]
     Indication: RENAL CELL CARCINOMA STAGE UNSPECIFIED
     Dosage: 6.0 MG/KG SQ/EVERY 7 DAYS
     Route: 058
     Dates: start: 20050627
  3. PEG INTERFERON [Suspect]
     Indication: RENAL CELL CARCINOMA STAGE UNSPECIFIED
     Dosage: 6.0 MG/KG SQ/EVERY 7 DAYS
     Route: 058
     Dates: start: 20050705
  4. PEG INTERFERON [Suspect]
     Indication: RENAL CELL CARCINOMA STAGE UNSPECIFIED
     Dosage: 6.0 MG/KG SQ/EVERY 7 DAYS
     Route: 058
     Dates: start: 20050711
  5. GLYBURIDE [Concomitant]
  6. LISINOPRIL [Concomitant]
  7. TAMSULAIN [Concomitant]
  8. ATENOLOL [Concomitant]
  9. HYDROCHLOROTHRAZIDE [Concomitant]
  10. FINASTERIDE [Concomitant]
  11. ALPRAZOLAM [Concomitant]
  12. HYDROCODONE [Concomitant]

REACTIONS (2)
  - FATIGUE [None]
  - RENAL FAILURE [None]
